FAERS Safety Report 6648320-4 (Version None)
Quarter: 2010Q1

REPORT INFORMATION
  Report Type: 
  Country: None (occurrence: None)
  Receive Date: 20100324
  Receipt Date: 20100322
  Transmission Date: 20100710
  Serious: Yes (Hospitalization)
  Sender: FDA-Public Use
  Company Number: AT-ROCHE-691010

PATIENT
  Sex: Female
  Weight: 81 kg

DRUGS (4)
  1. HERCEPTIN [Suspect]
     Indication: BREAST CANCER
     Dosage: 5TH CYCLE
     Route: 065
  2. NOLVADEX [Concomitant]
     Dates: start: 20100201
  3. TAXOTERE [Concomitant]
     Dates: start: 20091207, end: 20100118
  4. FEC REGIMEN [Concomitant]
     Dosage: 3 CYCLES
     Dates: start: 20091005, end: 20091117

REACTIONS (1)
  - PANCREATITIS ACUTE [None]
